FAERS Safety Report 11202168 (Version 1)
Quarter: 2015Q2

REPORT INFORMATION
  Report Type: Spontaneous
  Country: US (occurrence: None)
  Receive Date: 20150617
  Receipt Date: 20150617
  Transmission Date: 20150821
  Serious: Yes (Other)
  Sender: FDA-Public Use
  Company Number: ADR-2013-02367

PATIENT
  Age: 64 Year
  Sex: Male

DRUGS (6)
  1. FENTANYL (CONCENTRATION NOT PROVIDED) [Suspect]
     Active Substance: FENTANYL
  2. CLONIDINE (CONCENTRATION NOT PROVIDED) [Suspect]
     Active Substance: CLONIDINE
  3. BACLOFEN INTRATHECAL (SEE B5) [Suspect]
     Active Substance: BACLOFEN
     Indication: PAIN
  4. BUPIVACAINE [Suspect]
     Active Substance: BUPIVACAINE
     Indication: PAIN
  5. FENTANYL PATCHES [Suspect]
     Active Substance: FENTANYL
  6. OXYCODONE [Suspect]
     Active Substance: OXYCODONE

REACTIONS (14)
  - Vomiting [None]
  - Hyperhidrosis [None]
  - Pain [None]
  - Therapy change [None]
  - Stress [None]
  - No therapeutic response [None]
  - Drug dose omission [None]
  - Arachnoiditis [None]
  - Nerve injury [None]
  - Device malfunction [None]
  - Neurosis [None]
  - Spinal cord disorder [None]
  - Catheter site granuloma [None]
  - Anxiety [None]
